FAERS Safety Report 9095514 (Version 1)
Quarter: 2013Q1

REPORT INFORMATION
  Report Type: Spontaneous
  Country: IT (occurrence: None)
  Receive Date: 20130124
  Receipt Date: 20130124
  Transmission Date: 20140127
  Serious: Yes (Hospitalization)
  Sender: FDA-Public Use
  Company Number: 2013AP000089

PATIENT
  Age: 29 Year
  Sex: Female

DRUGS (3)
  1. CLARITHROMYCIN [Suspect]
     Indication: PRODUCT USED FOR UNKNOWN INDICATION
     Route: 048
     Dates: start: 20121231, end: 20121231
  2. AMITRIPTYLINE HYDROCHLORIDE [Concomitant]
  3. AUGMENTIN (AMOXICILLIN W/CLAVULANATE POTASSIUM) [Concomitant]

REACTIONS (5)
  - Dyspnoea [None]
  - Rash generalised [None]
  - Throat tightness [None]
  - Vertigo [None]
  - Pruritus generalised [None]
